FAERS Safety Report 25569324 (Version 1)
Quarter: 2025Q3

REPORT INFORMATION
  Report Type: Spontaneous
  Country: US (occurrence: US)
  Receive Date: 20250716
  Receipt Date: 20250716
  Transmission Date: 20251021
  Serious: No
  Sender: ALEXION PHARMACEUTICALS
  Company Number: US-AstraZeneca-CH-00911492A

PATIENT
  Age: 57 Year

DRUGS (2)
  1. FASLODEX [Suspect]
     Active Substance: FULVESTRANT
     Route: 065
  2. FASLODEX [Suspect]
     Active Substance: FULVESTRANT

REACTIONS (4)
  - Product administration error [Unknown]
  - Injection site pain [Unknown]
  - Injection site hypoaesthesia [Unknown]
  - Injection site paraesthesia [Unknown]
